FAERS Safety Report 9781300 (Version 1)
Quarter: 2013Q4

REPORT INFORMATION
  Report Type: Report from Study
  Country: US (occurrence: US)
  Receive Date: 20131224
  Receipt Date: 20131224
  Transmission Date: 20140711
  Serious: Yes (Other)
  Sender: FDA-Public Use
  Company Number: US-PURDUE-USA-2013-0109779

PATIENT
  Age: 57 Year
  Sex: Male

DRUGS (1)
  1. OXY CR TAB [Suspect]
     Indication: PAIN
     Dosage: 80 MG, BID
     Route: 048

REACTIONS (2)
  - Spinal fusion surgery [Recovered/Resolved]
  - Intervertebral disc operation [Recovered/Resolved]
